FAERS Safety Report 4314137-9 (Version None)
Quarter: 2004Q1

REPORT INFORMATION
  Report Type: 
  Country: None (occurrence: None)
  Receive Date: 20040305
  Receipt Date: 20031203
  Transmission Date: 20041129
  Serious: No
  Sender: FDA-Public Use
  Company Number: PHEH2003US10979

PATIENT
  Age: 42 Year
  Sex: Male

DRUGS (3)
  1. FORADIL [Suspect]
     Indication: ASTHMA
     Dates: start: 20031001
  2. ASPIRIN INFANTIL [Concomitant]
  3. TOPROL-XL [Concomitant]

REACTIONS (5)
  - HEART RATE INCREASED [None]
  - MUSCLE CRAMP [None]
  - PAIN IN EXTREMITY [None]
  - PARAESTHESIA [None]
  - TREMOR [None]
